FAERS Safety Report 11310033 (Version 2)
Quarter: 2015Q3

REPORT INFORMATION
  Report Type: Report from Study
  Country: JP (occurrence: JP)
  Receive Date: 20150724
  Receipt Date: 20150911
  Transmission Date: 20151125
  Serious: Yes (Other)
  Sender: FDA-Public Use
  Company Number: JP-BRISTOL-MYERS SQUIBB COMPANY-BMS-2015-005669

PATIENT
  Age: 65 Year
  Sex: Female

DRUGS (2)
  1. NIVOLUMAB [Suspect]
     Active Substance: NIVOLUMAB
     Dosage: UNK
     Route: 041
     Dates: start: 20141218
  2. NIVOLUMAB [Suspect]
     Active Substance: NIVOLUMAB
     Indication: MALIGNANT MELANOMA
     Dosage: 2 MG/KG, UNK
     Route: 041
     Dates: start: 20141119

REACTIONS (3)
  - Hypothyroidism [Recovering/Resolving]
  - Hyperthyroidism [Unknown]
  - Goitre [Unknown]

NARRATIVE: CASE EVENT DATE: 201412
